FAERS Safety Report 14897178 (Version 1)
Quarter: 2018Q2

REPORT INFORMATION
  Report Type: Report from Study
  Country: DE (occurrence: DE)
  Receive Date: 20180515
  Receipt Date: 20180515
  Transmission Date: 20180711
  Serious: Yes (Hospitalization)
  Sender: FDA-Public Use
  Company Number: DE-BAXTER-2018BAX014155

PATIENT
  Age: 61 Year
  Sex: Female
  Weight: 100 kg

DRUGS (6)
  1. TRASTUZUMAB. [Suspect]
     Active Substance: TRASTUZUMAB
     Indication: HER-2 POSITIVE BREAST CANCER
     Route: 058
     Dates: start: 20160112, end: 20160316
  2. TRASTUZUMAB. [Suspect]
     Active Substance: TRASTUZUMAB
     Route: 058
  3. ENDOXAN 1G [Suspect]
     Active Substance: CYCLOPHOSPHAMIDE
     Indication: BREAST CANCER
     Route: 042
     Dates: start: 20151103, end: 20151215
  4. PERTUZUMAB. [Suspect]
     Active Substance: PERTUZUMAB
     Indication: BREAST CANCER
     Route: 042
     Dates: start: 20160112, end: 20160713
  5. EPIRUBICIN [Suspect]
     Active Substance: EPIRUBICIN
     Indication: BREAST CANCER
     Route: 042
     Dates: start: 20151103, end: 20151215
  6. PACLITAXEL. [Suspect]
     Active Substance: PACLITAXEL
     Indication: BREAST CANCER
     Dosage: DAY 1, 8 AND 15 OF CYCLE, REPEAT ON DAY 22
     Route: 042

REACTIONS (11)
  - Wound [Recovered/Resolved]
  - Diarrhoea [Recovered/Resolved]
  - Vomiting [Unknown]
  - Rash [Recovered/Resolved]
  - Headache [Recovered/Resolved]
  - Pancytopenia [Recovered/Resolved]
  - Abdominal pain upper [Recovered/Resolved]
  - General physical health deterioration [Recovered/Resolved]
  - Paraesthesia [Recovered/Resolved]
  - Dyspnoea exertional [Recovered/Resolved]
  - Musculoskeletal discomfort [Recovered/Resolved]

NARRATIVE: CASE EVENT DATE: 20151201
